FAERS Safety Report 6314359-1 (Version None)
Quarter: 2009Q3

REPORT INFORMATION
  Report Type: 
  Country: None (occurrence: None)
  Receive Date: 20090819
  Receipt Date: 20090810
  Transmission Date: 20100115
  Serious: Yes (Other)
  Sender: FDA-Public Use
  Company Number: US-JNJFOC-20090706858

PATIENT
  Sex: Male
  Weight: 97.51 kg

DRUGS (2)
  1. REOPRO [Suspect]
     Dosage: 9MG/250CC
     Route: 042
  2. REOPRO [Suspect]
     Indication: PERCUTANEOUS CORONARY INTERVENTION
     Dosage: 9MG/250CC
     Route: 042

REACTIONS (1)
  - ACCIDENTAL OVERDOSE [None]
